FAERS Safety Report 22622256 (Version 1)
Quarter: 2023Q2

REPORT INFORMATION
  Report Type: Spontaneous
  Country: US (occurrence: US)
  Receive Date: 20230620
  Receipt Date: 20230620
  Transmission Date: 20230721
  Serious: No
  Sender: FDA-Public Use
  Company Number: US-JNJFOC-20230632689

PATIENT

DRUGS (4)
  1. SPRAVATO [Suspect]
     Active Substance: ESKETAMINE
     Indication: Major depression
     Dosage: PROVIDE THE REASON WHY LOT NUMBER IS UNKNOWN: IN A PHARMACY CONTAINER
     Dates: start: 20230613
  2. SPRAVATO [Suspect]
     Active Substance: ESKETAMINE
     Indication: Depression
  3. SPRAVATO [Suspect]
     Active Substance: ESKETAMINE
     Indication: Suicidal ideation
  4. OZEMPIC [Concomitant]
     Active Substance: SEMAGLUTIDE
     Indication: Product used for unknown indication

REACTIONS (1)
  - Depression [Unknown]

NARRATIVE: CASE EVENT DATE: 20230613
